FAERS Safety Report 23684253 (Version 1)
Quarter: 2024Q1

REPORT INFORMATION
  Report Type: Spontaneous
  Country: US (occurrence: US)
  Receive Date: 20240328
  Receipt Date: 20240328
  Transmission Date: 20240410
  Serious: Yes (Other)
  Sender: FDA-Public Use
  Company Number: US-LEX-000222

PATIENT
  Sex: Female

DRUGS (4)
  1. INPEFA [Suspect]
     Active Substance: SOTAGLIFLOZIN
     Indication: Hypertensive heart disease
     Dosage: IN THE MORNING; DISCONTINUED AFTER 30 DAYS.
     Route: 048
     Dates: start: 2023
  2. INPEFA [Suspect]
     Active Substance: SOTAGLIFLOZIN
     Indication: Hypertensive heart disease
     Dosage: IN THE MORNING; RESTARTED ON AN UNKNOWN DATE.
     Route: 048
  3. PREDNISONE [Concomitant]
     Active Substance: PREDNISONE
  4. JARDIANCE [Concomitant]
     Active Substance: EMPAGLIFLOZIN

REACTIONS (13)
  - Sepsis [Unknown]
  - Off label use [Unknown]
  - Inflammation [Unknown]
  - Oropharyngeal pain [Unknown]
  - Nausea [Unknown]
  - Vomiting [Unknown]
  - Abdominal pain upper [Unknown]
  - Bedridden [Unknown]
  - Fatigue [Unknown]
  - Blood glucose increased [Unknown]
  - Dyspnoea [Unknown]
  - Inability to afford medication [Unknown]
  - Therapy interrupted [Unknown]
